FAERS Safety Report 18272717 (Version 1)
Quarter: 2020Q3

REPORT INFORMATION
  Report Type: Report from Study
  Country: US (occurrence: US)
  Receive Date: 20200916
  Receipt Date: 20200916
  Transmission Date: 20201103
  Serious: Yes (Hospitalization, Other)
  Sender: FDA-Public Use
  Company Number: US-PFIZER INC-2020354438

PATIENT
  Age: 3 Year
  Sex: Male
  Weight: 3.76 kg

DRUGS (4)
  1. TRAZODONE [Suspect]
     Active Substance: TRAZODONE HYDROCHLORIDE
     Indication: BIPOLAR DISORDER
     Dosage: UNK (7 WEEKS TO 40 WEEKS GESTATION)
     Route: 064
  2. SEROQUEL [Suspect]
     Active Substance: QUETIAPINE FUMARATE
     Indication: BIPOLAR DISORDER
     Dosage: UNK (7 WEEKS TO 40 WEEKS)
     Route: 064
  3. ZOLOFT [Suspect]
     Active Substance: SERTRALINE HYDROCHLORIDE
     Indication: BIPOLAR DISORDER
     Dosage: UNK (0 WEEKS TO 40 WEEKS GESTATION)
     Route: 064
  4. LATUDA [Suspect]
     Active Substance: LURASIDONE HYDROCHLORIDE
     Indication: BIPOLAR DISORDER
     Dosage: UNK (0 TO 7 WEEKS GESTATION)
     Route: 064

REACTIONS (4)
  - Meconium aspiration syndrome [Recovered/Resolved]
  - Foetal exposure during pregnancy [Unknown]
  - Respiratory distress [Recovered/Resolved]
  - Neonatal tachycardia [Recovered/Resolved]

NARRATIVE: CASE EVENT DATE: 20170509
